FAERS Safety Report 10206229 (Version 1)
Quarter: 2014Q2

REPORT INFORMATION
  Report Type: Spontaneous
  Country: US (occurrence: None)
  Receive Date: 20140527
  Receipt Date: 20140527
  Transmission Date: 20141212
  Serious: No
  Sender: FDA-Public Use
  Company Number: None

PATIENT
  Age: 54 Year
  Sex: Female
  Weight: 65.77 kg

DRUGS (8)
  1. LEVOFLOXACIN [Suspect]
     Indication: URINARY TRACT INFECTION
     Dosage: 1 PILL
     Route: 048
     Dates: start: 20140520, end: 20140521
  2. VIT E [Concomitant]
  3. VIT B [Concomitant]
  4. ACETYL L CARNITINE [Concomitant]
  5. ALPHA LIPOIC ACID [Concomitant]
  6. MAGNESIUM [Concomitant]
  7. CAYENNE PEPPER [Concomitant]
  8. TURMERIC [Concomitant]

REACTIONS (4)
  - Neuropathy peripheral [None]
  - Anxiety [None]
  - Nervousness [None]
  - Paranoia [None]
